FAERS Safety Report 14629720 (Version 1)
Quarter: 2018Q1

REPORT INFORMATION
  Report Type: Spontaneous
  Country: FR (occurrence: FR)
  Receive Date: 20180313
  Receipt Date: 20180313
  Transmission Date: 20180509
  Serious: Yes (Disabling)
  Sender: FDA-Public Use
  Company Number: FR-MERCK KGAA-2043598

PATIENT
  Age: 54 Year
  Sex: Female

DRUGS (1)
  1. NOVOTHYROX [Suspect]
     Active Substance: LEVOTHYROXINE SODIUM
     Indication: PRODUCT USED FOR UNKNOWN INDICATION
     Dates: end: 2017

REACTIONS (18)
  - Diarrhoea [Recovering/Resolving]
  - Alopecia [None]
  - Sleep disorder [None]
  - Dizziness [Not Recovered/Not Resolved]
  - Impaired driving ability [None]
  - Insomnia [None]
  - Nausea [None]
  - Balance disorder [None]
  - Amnesia [None]
  - Disturbance in attention [None]
  - Blood thyroid stimulating hormone abnormal [None]
  - Loss of personal independence in daily activities [None]
  - Irritability [None]
  - Asthenia [None]
  - Hyperhidrosis [None]
  - Agitation [None]
  - Thyroxine free decreased [None]
  - Fatigue [None]
